FAERS Safety Report 15579771 (Version 3)
Quarter: 2019Q1

REPORT INFORMATION
  Report Type: Report from Study
  Country: IT (occurrence: IT)
  Receive Date: 20181102
  Receipt Date: 20190318
  Transmission Date: 20190417
  Serious: Yes (Other)
  Sender: FDA-Public Use
  Company Number: IT-MYLANLABS-2018M1083004

PATIENT
  Age: 56 Year
  Sex: Female

DRUGS (3)
  1. SOTALOL. [Suspect]
     Active Substance: SOTALOL
     Dosage: 1 DOSAGE FORM, QD
     Route: 048
  2. XARELTO [Concomitant]
     Active Substance: RIVAROXABAN
     Indication: ATRIAL FIBRILLATION
     Dosage: 1 DOSAGE FORM
     Route: 048
  3. SOTALOL. [Suspect]
     Active Substance: SOTALOL
     Indication: ATRIAL FIBRILLATION
     Dosage: 1 DOSAGE FORM, PRN (AS NECESSARY)
     Route: 048

REACTIONS (3)
  - Atrial fibrillation [Recovered/Resolved]
  - Medication error [Recovered/Resolved]
  - Angina pectoris [Recovered/Resolved]

NARRATIVE: CASE EVENT DATE: 20180516
